FAERS Safety Report 13898467 (Version 1)
Quarter: 2017Q3

REPORT INFORMATION
  Report Type: Spontaneous
  Country: FR (occurrence: FR)
  Receive Date: 20170824
  Receipt Date: 20170824
  Transmission Date: 20171127
  Serious: Yes (Death, Hospitalization, Other)
  Sender: FDA-Public Use
  Company Number: FR-MYLANLABS-16X-056-1267230-00

PATIENT

DRUGS (5)
  1. KETOPROFEN. [Suspect]
     Active Substance: KETOPROFEN
     Indication: SINUSITIS
     Dosage: UNK
     Route: 065
  2. PARACETAMOL [Suspect]
     Active Substance: ACETAMINOPHEN
     Indication: SINUSITIS
     Dosage: UNK
     Route: 065
  3. IBUPROFEN (NOS) [Suspect]
     Active Substance: IBUPROFEN
     Indication: SINUSITIS
     Dosage: UNK
     Route: 065
  4. ZOLMITRIPTAN. [Concomitant]
     Active Substance: ZOLMITRIPTAN
     Indication: SINUSITIS
     Dosage: UNK
  5. CEFPODOXIME PROXETIL. [Concomitant]
     Active Substance: CEFPODOXIME PROXETIL
     Indication: MENINGITIS
     Dosage: UNK

REACTIONS (6)
  - Meningoencephalitis bacterial [Fatal]
  - Brain death [Fatal]
  - Brain oedema [Unknown]
  - Coma [Unknown]
  - Hernia [Unknown]
  - Streptococcal infection [Unknown]
